FAERS Safety Report 8454103-5 (Version None)
Quarter: 2012Q2

REPORT INFORMATION
  Report Type: 
  Country: None (occurrence: None)
  Receive Date: 20120620
  Receipt Date: 20120611
  Transmission Date: 20120825
  Serious: Yes (Hospitalization, Disabling, Other)
  Sender: FDA-Public Use
  Company Number: NO-TEVA-342351ISR

PATIENT
  Sex: Male

DRUGS (10)
  1. REMICADE [Suspect]
     Route: 041
     Dates: start: 20110608, end: 20110601
  2. ALL OTHER MEDICATIONS [Concomitant]
     Dosage: DOSAGE FORM: UNSPECIFIED
     Route: 065
  3. LOPERAMIDE [Concomitant]
     Dosage: DOSAGE FORM: UNSPECIFIED
     Route: 065
  4. ATACAND [Concomitant]
     Dosage: DOSAGE FORM: UNSPECIFIED
     Route: 065
  5. PARALGIN FORTE [Concomitant]
     Dosage: DOSAGE FORM: UNSPECIFIED
     Route: 065
  6. METOPROLOL [Concomitant]
     Dosage: DOSAGE FORM: UNSPECIFIED
     Route: 065
  7. SIMVASTATIN [Suspect]
     Indication: PRODUCT USED FOR UNKNOWN INDICATION
     Dosage: DOSAGE FORM: UNSPECIFIED
     Route: 065
  8. PENTASA [Concomitant]
     Dosage: DOSAGE FORM: UNSPECIFIED
     Route: 065
  9. REMICADE [Suspect]
     Indication: ANKYLOSING SPONDYLITIS
     Route: 042
     Dates: start: 20080101
  10. ACETAMINOPHEN [Concomitant]
     Dosage: DOSAGE FORM: UNSPECIFIED
     Route: 065

REACTIONS (6)
  - DILATATION VENTRICULAR [None]
  - CORONARY ARTERY STENOSIS [None]
  - INTESTINAL STENOSIS [None]
  - AORTIC VALVE INCOMPETENCE [None]
  - CARDIAC FAILURE [None]
  - ATRIAL FIBRILLATION [None]
